FAERS Safety Report 22607265 (Version 1)
Quarter: 2023Q2

REPORT INFORMATION
  Report Type: Spontaneous
  Country: GB (occurrence: GB)
  Receive Date: 20230615
  Receipt Date: 20230615
  Transmission Date: 20230721
  Serious: Yes (Other)
  Sender: FDA-Public Use
  Company Number: GB-drreddys-LIT/UKI/23/0166653

PATIENT
  Age: 8 Decade
  Sex: Female

DRUGS (2)
  1. ZOLEDRONIC ACID [Suspect]
     Active Substance: ZOLEDRONIC ACID
     Indication: Hypercalcaemia of malignancy
     Route: 042
  2. ZOLEDRONIC ACID [Suspect]
     Active Substance: ZOLEDRONIC ACID
     Dosage: 2ND DOSE
     Route: 042

REACTIONS (3)
  - Hypercalcaemia of malignancy [Unknown]
  - Disease recurrence [Unknown]
  - Drug ineffective [Unknown]
